FAERS Safety Report 23377253 (Version 3)
Quarter: 2025Q2

REPORT INFORMATION
  Report Type: Report from Study
  Country: IT (occurrence: IT)
  Receive Date: 20240108
  Receipt Date: 20250503
  Transmission Date: 20250717
  Serious: Yes (Life-Threatening, Other)
  Sender: AUROBINDO
  Company Number: IT-ROCHE-3483097

PATIENT
  Age: 69 Year
  Sex: Female

DRUGS (5)
  1. BENDAMUSTINE [Suspect]
     Active Substance: BENDAMUSTINE
     Indication: Mantle cell lymphoma
     Route: 065
  2. RITUXIMAB [Suspect]
     Active Substance: RITUXIMAB
     Indication: Mantle cell lymphoma
     Route: 065
  3. ELASOMERAN [Suspect]
     Active Substance: ELASOMERAN
     Indication: COVID-19
     Route: 065
     Dates: start: 202103
  4. ELASOMERAN [Suspect]
     Active Substance: ELASOMERAN
     Route: 065
  5. ELASOMERAN [Suspect]
     Active Substance: ELASOMERAN
     Route: 065

REACTIONS (4)
  - Breakthrough COVID-19 [Unknown]
  - COVID-19 [Unknown]
  - Vaccination failure [Unknown]
  - Intentional product use issue [Unknown]
